FAERS Safety Report 23110433 (Version 2)
Quarter: 2023Q4

REPORT INFORMATION
  Report Type: Spontaneous
  Country: US (occurrence: US)
  Receive Date: 20231026
  Receipt Date: 20231107
  Transmission Date: 20240109
  Serious: Yes (Death, Hospitalization)
  Sender: FDA-Public Use
  Company Number: US-TEVA-2023-US-2937929

PATIENT
  Age: 70 Year
  Sex: Female

DRUGS (4)
  1. VANCOMYCIN [Suspect]
     Active Substance: VANCOMYCIN
     Indication: Pseudomonas infection
     Dosage: STARTED RECEIVING AT THE HOSPITAL
     Route: 065
  2. VANCOMYCIN [Suspect]
     Active Substance: VANCOMYCIN
     Indication: Pseudomonal bacteraemia
  3. CEFEPIME [Suspect]
     Active Substance: CEFEPIME HYDROCHLORIDE
     Indication: Pseudomonas infection
     Dosage: RECEIVED SIX WEEK COURSE, PRIOR TO THE PRESENTATION
     Route: 065
  4. CEFEPIME [Suspect]
     Active Substance: CEFEPIME HYDROCHLORIDE
     Indication: Pseudomonal bacteraemia
     Dosage: STARTED RECEIVING AT THE HOSPITAL; ANOTHER COURSE FOR SIX WEEKS
     Route: 065

REACTIONS (1)
  - Drug ineffective [Fatal]
